FAERS Safety Report 24195109 (Version 1)
Quarter: 2024Q3

REPORT INFORMATION
  Report Type: Spontaneous
  Country: US (occurrence: US)
  Receive Date: 20240809
  Receipt Date: 20240809
  Transmission Date: 20241016
  Serious: No
  Sender: ANI
  Company Number: US-ANIPHARMA-2024-US-030939

PATIENT
  Age: 36 Year
  Sex: Female
  Weight: 88.45 kg

DRUGS (2)
  1. CORTICOTROPIN [Suspect]
     Active Substance: CORTICOTROPIN
     Indication: Iritis
     Dosage: INJECT 80 UNITS (1ML) SUBCUTANEOUSLY TWO TIMES A WEEK AS DIRECTED
     Route: 058
     Dates: start: 202402
  2. INTRAUTERINE DEVICE [Concomitant]
     Active Substance: INTRAUTERINE DEVICE

REACTIONS (1)
  - Pseudopapilloedema [Not Recovered/Not Resolved]

NARRATIVE: CASE EVENT DATE: 20240531
